FAERS Safety Report 10214498 (Version 1)
Quarter: 2014Q2

REPORT INFORMATION
  Report Type: Spontaneous
  Country: NL (occurrence: NL)
  Receive Date: 20140603
  Receipt Date: 20140603
  Transmission Date: 20141212
  Serious: Yes (Death, Hospitalization, Other)
  Sender: FDA-Public Use
  Company Number: NL-TEVA-485019ISR

PATIENT
  Age: 70 Year
  Sex: Female

DRUGS (2)
  1. OXALIPLATIN [Suspect]
     Indication: CHEMOTHERAPY
     Route: 065
  2. CAPECITABINE [Suspect]
     Indication: CHEMOTHERAPY
     Route: 065

REACTIONS (4)
  - Multi-organ failure [Fatal]
  - Mucosal inflammation [Fatal]
  - Sepsis [Fatal]
  - Venoocclusive liver disease [Fatal]
